FAERS Safety Report 19289226 (Version 1)
Quarter: 2021Q2

REPORT INFORMATION
  Report Type: Spontaneous
  Country: FR (occurrence: FR)
  Receive Date: 20210521
  Receipt Date: 20210521
  Transmission Date: 20210717
  Serious: Yes (Hospitalization)
  Sender: FDA-Public Use
  Company Number: FR-JNJFOC-20210521929

PATIENT
  Age: 52 Year
  Sex: Male
  Weight: 108 kg

DRUGS (26)
  1. ROSUVASTATIN. [Concomitant]
     Active Substance: ROSUVASTATIN
     Route: 065
     Dates: start: 20150112
  2. ZOPICLONE [Concomitant]
     Active Substance: ZOPICLONE
     Dosage: AT BED TIME
     Route: 065
  3. VITAMIN B6 [Concomitant]
     Active Substance: PYRIDOXINE HYDROCHLORIDE
     Route: 065
     Dates: start: 20180129, end: 20180226
  4. UVEDOSE [Concomitant]
     Active Substance: CHOLECALCIFEROL
     Dosage: 1 AMPOULE / 3 MONTHS
  5. EZETROL [Concomitant]
     Active Substance: EZETIMIBE
     Dosage: IN THE MORNING
     Route: 065
  6. PANTOPRAZOLE [Concomitant]
     Active Substance: PANTOPRAZOLE
     Dosage: AT NIGHT
     Route: 065
  7. DAIVOBET [Concomitant]
     Active Substance: BETAMETHASONE DIPROPIONATE\CALCIPOTRIENE
     Route: 065
     Dates: start: 20131118
  8. PROCORALAN [Concomitant]
     Active Substance: IVABRADINE
     Route: 065
     Dates: start: 2013, end: 20180109
  9. RAMIPRIL. [Concomitant]
     Active Substance: RAMIPRIL
     Dosage: IN THE MORNING
     Route: 065
     Dates: start: 20160114
  10. SOTALOL HYDROCHLORIDE. [Concomitant]
     Active Substance: SOTALOL HYDROCHLORIDE
     Route: 065
     Dates: start: 20180109, end: 20180226
  11. MAGNESIUM HYDROXIDE. [Concomitant]
     Active Substance: MAGNESIUM HYDROXIDE
     Route: 065
     Dates: start: 20180129, end: 20180226
  12. TREMFYA [Suspect]
     Active Substance: GUSELKUMAB
     Indication: PSORIASIS
     Route: 058
     Dates: start: 20190225
  13. AMLODIPINE [Concomitant]
     Active Substance: AMLODIPINE BESYLATE
     Dosage: IN THE EVENING
     Route: 065
     Dates: start: 2013
  14. ATORVASTATIN [Concomitant]
     Active Substance: ATORVASTATIN
     Route: 065
     Dates: start: 200712
  15. DAIVOBET [Concomitant]
     Active Substance: BETAMETHASONE DIPROPIONATE\CALCIPOTRIENE
     Dates: start: 20170828, end: 20180226
  16. PLAVIX [Concomitant]
     Active Substance: CLOPIDOGREL BISULFATE
     Route: 065
     Dates: start: 200712
  17. CLOBEX [CLOXACILLIN SODIUM] [Concomitant]
     Route: 065
     Dates: start: 20180226, end: 20180226
  18. XARELTO [Concomitant]
     Active Substance: RIVAROXABAN
     Dosage: IN THE EVENING
     Route: 065
     Dates: start: 20180109, end: 20180226
  19. TREMFYA [Suspect]
     Active Substance: GUSELKUMAB
  20. TREMFYA [Suspect]
     Active Substance: GUSELKUMAB
  21. AMLOR [Concomitant]
     Active Substance: AMLODIPINE BESYLATE
     Route: 065
     Dates: start: 2013
  22. ASPIRINE [Concomitant]
     Active Substance: ASPIRIN
     Route: 065
     Dates: start: 200712
  23. TAHOR [Concomitant]
     Active Substance: ATORVASTATIN CALCIUM
     Route: 065
  24. CLOPIDOGREL [Concomitant]
     Active Substance: CLOPIDOGREL BISULFATE
     Route: 065
     Dates: start: 200712
  25. KARDEGIC [Concomitant]
     Active Substance: ASPIRIN DL-LYSINE
     Route: 065
     Dates: start: 200712
  26. CRESTOR [Concomitant]
     Active Substance: ROSUVASTATIN CALCIUM
     Dosage: AT NIGHT
     Route: 065

REACTIONS (1)
  - Staphylococcal infection [Not Recovered/Not Resolved]

NARRATIVE: CASE EVENT DATE: 20210201
